FAERS Safety Report 24198385 (Version 1)
Quarter: 2024Q3

REPORT INFORMATION
  Report Type: Spontaneous
  Country: US (occurrence: US)
  Receive Date: 20240812
  Receipt Date: 20240812
  Transmission Date: 20241016
  Serious: Yes (Hospitalization)
  Sender: NOVO NORDISK
  Company Number: US-NOVOPROD-1265654

PATIENT

DRUGS (1)
  1. NOVOLIN R [Suspect]
     Active Substance: INSULIN HUMAN
     Indication: Product used for unknown indication
     Dosage: UNK (3 TIMES A DAY)
     Route: 058
     Dates: end: 20240614

REACTIONS (3)
  - Ketoacidosis [Unknown]
  - Blood glucose increased [Unknown]
  - Drug ineffective [Unknown]
